FAERS Safety Report 4313992-6 (Version None)
Quarter: 2004Q1

REPORT INFORMATION
  Report Type: 
  Country: None (occurrence: None)
  Receive Date: 20040305
  Receipt Date: 20040226
  Transmission Date: 20041129
  Serious: No
  Sender: FDA-Public Use
  Company Number: 2004UW03639

PATIENT
  Age: 75 Year
  Sex: Male

DRUGS (12)
  1. CRESTOR [Suspect]
     Dosage: 10 MG QD PO
     Route: 048
  2. ATROVENT [Concomitant]
  3. COLACE [Concomitant]
  4. ASPIRIN [Concomitant]
  5. ENOXAPARIN SODIUM [Concomitant]
  6. LIPITOR [Concomitant]
  7. METOPROLOL [Concomitant]
  8. NITROGLYCERIN [Concomitant]
  9. OXAZEPAM [Concomitant]
  10. PLAVIX [Concomitant]
  11. RAMIPRIL [Concomitant]
  12. TYLENOL NO. 2 [Concomitant]

REACTIONS (2)
  - RASH [None]
  - URTICARIA PAPULAR [None]
